FAERS Safety Report 14126620 (Version 3)
Quarter: 2017Q4

REPORT INFORMATION
  Report Type: Spontaneous
  Country: FR (occurrence: FR)
  Receive Date: 20171025
  Receipt Date: 20171101
  Transmission Date: 20180321
  Serious: Yes (Other)
  Sender: FDA-Public Use
  Company Number: FR-MERCK KGAA-2031472

PATIENT
  Age: 41 Year
  Sex: Female

DRUGS (3)
  1. LEVOTHYROX [Suspect]
     Active Substance: LEVOTHYROXINE
     Route: 048
     Dates: start: 20170825, end: 20170912
  2. NOVOTHYROX [Suspect]
     Active Substance: LEVOTHYROXINE SODIUM
     Indication: THYROIDECTOMY
     Route: 048
     Dates: start: 20170403, end: 20170825
  3. LEVOTHYROX [Suspect]
     Active Substance: LEVOTHYROXINE
     Route: 048
     Dates: start: 20170825, end: 20170912

REACTIONS (12)
  - Asthenia [Not Recovered/Not Resolved]
  - Alopecia [Not Recovered/Not Resolved]
  - Blood thyroid stimulating hormone decreased [Not Recovered/Not Resolved]
  - Vertigo [Not Recovered/Not Resolved]
  - Muscle spasms [Not Recovered/Not Resolved]
  - Paraesthesia [Not Recovered/Not Resolved]
  - Headache [Not Recovered/Not Resolved]
  - Pain [Not Recovered/Not Resolved]
  - Irritability [Not Recovered/Not Resolved]
  - Disturbance in attention [Not Recovered/Not Resolved]
  - Hyperhidrosis [Not Recovered/Not Resolved]
  - Insomnia [Not Recovered/Not Resolved]

NARRATIVE: CASE EVENT DATE: 2017
